FAERS Safety Report 4526501-3 (Version None)
Quarter: 2004Q4

REPORT INFORMATION
  Report Type: 
  Country: None (occurrence: None)
  Receive Date: 20041214
  Receipt Date: 20041203
  Transmission Date: 20050328
  Serious: Yes (Disabling)
  Sender: FDA-Public Use
  Company Number: US-MERCK-0412USA00543

PATIENT
  Age: 52 Year
  Sex: Female

DRUGS (5)
  1. VIOXX [Suspect]
     Indication: ARTHRITIS
     Route: 048
     Dates: start: 20020101, end: 20041101
  2. MOTRIN [Concomitant]
     Route: 065
  3. METHADONE HCL [Concomitant]
     Route: 065
  4. NAPROXEN [Concomitant]
     Route: 065
  5. [THERAPY UNSPECIFIED] [Concomitant]
     Route: 065

REACTIONS (3)
  - CHEST PAIN [None]
  - HEADACHE [None]
  - THYROID DISORDER [None]
